FAERS Safety Report 21867916 (Version 1)
Quarter: 2023Q1

REPORT INFORMATION
  Report Type: Spontaneous
  Country: US (occurrence: US)
  Receive Date: 20230116
  Receipt Date: 20230116
  Transmission Date: 20230418
  Serious: Yes (Other)
  Sender: FDA-Public Use
  Company Number: US-PFIZER INC-202300016278

PATIENT
  Age: 61 Year
  Sex: Female
  Weight: 58.06 kg

DRUGS (1)
  1. PAXLOVID [Suspect]
     Active Substance: NIRMATRELVIR\RITONAVIR
     Indication: COVID-19 treatment
     Dosage: [PF-07321332 300 MG]/[RITONAVIR 100 MG]; 2X/DAY
     Dates: start: 20230111

REACTIONS (13)
  - Blood pressure increased [Unknown]
  - Blood glucose increased [Unknown]
  - Condition aggravated [Unknown]
  - Vision blurred [Unknown]
  - Abdominal distension [Unknown]
  - Nausea [Unknown]
  - Dysgeusia [Unknown]
  - Product odour abnormal [Unknown]
  - Eructation [Unknown]
  - Throat irritation [Unknown]
  - Nasal discomfort [Unknown]
  - Oral discomfort [Unknown]
  - Abdominal discomfort [Unknown]

NARRATIVE: CASE EVENT DATE: 20230111
